FAERS Safety Report 13634912 (Version 1)
Quarter: 2017Q2

REPORT INFORMATION
  Report Type: Spontaneous
  Country: US (occurrence: US)
  Receive Date: 20170531
  Receipt Date: 20170531
  Transmission Date: 20170830
  Serious: No
  Sender: FDA-Public Use
  Company Number: US-ASTELLAS-1667843

PATIENT
  Age: 57 Year
  Sex: Female

DRUGS (7)
  1. TARCEVA [Suspect]
     Active Substance: ERLOTINIB HYDROCHLORIDE
     Route: 048
  2. QUERCETIN [Concomitant]
     Active Substance: QUERCETIN
  3. TARCEVA [Suspect]
     Active Substance: ERLOTINIB HYDROCHLORIDE
     Indication: LUNG NEOPLASM MALIGNANT
     Route: 048
     Dates: start: 20151117
  4. NYSTATIN. [Concomitant]
     Active Substance: NYSTATIN
  5. FOLIC ACID. [Concomitant]
     Active Substance: FOLIC ACID
  6. GLUTAMINE [Concomitant]
     Active Substance: GLUTAMINE
  7. ASPIR 81 [Concomitant]

REACTIONS (9)
  - Headache [Unknown]
  - Muscle spasms [Unknown]
  - Insomnia [Not Recovered/Not Resolved]
  - Pain [Not Recovered/Not Resolved]
  - Oral candidiasis [Unknown]
  - Rash [Not Recovered/Not Resolved]
  - Diarrhoea [Unknown]
  - Epistaxis [Not Recovered/Not Resolved]
  - Nasal crusting [Not Recovered/Not Resolved]

NARRATIVE: CASE EVENT DATE: 20151117
